FAERS Safety Report 7824145-9 (Version None)
Quarter: 2011Q4

REPORT INFORMATION
  Report Type: 
  Country: None (occurrence: None)
  Receive Date: 20111019
  Receipt Date: 20111014
  Transmission Date: 20120403
  Serious: Yes (Death, Hospitalization)
  Sender: FDA-Public Use
  Company Number: PHHY2011JP91337

PATIENT
  Sex: Male

DRUGS (2)
  1. MUCOSTA [Concomitant]
  2. VOLTAREN [Suspect]
     Route: 048

REACTIONS (2)
  - HAEMORRHAGE [None]
  - DUODENAL ULCER [None]
